FAERS Safety Report 8051011-9 (Version None)
Quarter: 2012Q1

REPORT INFORMATION
  Report Type: 
  Country: None (occurrence: None)
  Receive Date: 20120117
  Receipt Date: 20120111
  Transmission Date: 20120608
  Serious: Yes (Other)
  Sender: FDA-Public Use
  Company Number: PHEH2012US001126

PATIENT
  Sex: Male

DRUGS (1)
  1. DIOVAN [Suspect]
     Dates: start: 20111227, end: 20120102

REACTIONS (1)
  - URINARY RETENTION [None]
